FAERS Safety Report 8121643-8 (Version None)
Quarter: 2012Q1

REPORT INFORMATION
  Report Type: 
  Country: None (occurrence: None)
  Receive Date: 20120208
  Receipt Date: 20120208
  Transmission Date: 20120608
  Serious: No
  Sender: FDA-Public Use
  Company Number: None

PATIENT
  Age: 35 Year
  Sex: Female
  Weight: 86.182 kg

DRUGS (1)
  1. LO/OVRAL-28 [Suspect]
     Indication: HORMONE THERAPY
     Route: 048
     Dates: start: 20111126, end: 20120206

REACTIONS (4)
  - MOOD ALTERED [None]
  - ABDOMINAL PAIN [None]
  - PRODUCT QUALITY ISSUE [None]
  - BREAST PAIN [None]
